FAERS Safety Report 5003320-5 (Version None)
Quarter: 2006Q2

REPORT INFORMATION
  Report Type: 
  Country: None (occurrence: None)
  Receive Date: 20060511
  Receipt Date: 20060503
  Transmission Date: 20061013
  Serious: No
  Sender: FDA-Public Use
  Company Number: 2006-142102-NL

PATIENT
  Age: 34 Year
  Sex: Male

DRUGS (3)
  1. ROCURONIUM BROMIDE [Suspect]
     Indication: INDUCTION OF ANAESTHESIA
     Dosage: 50 MG ONCE
     Dates: start: 20000817, end: 20000817
  2. FENTANYL [Suspect]
     Indication: INDUCTION OF ANAESTHESIA
     Dosage: 4 ML ONCE
     Dates: start: 20000817, end: 20000817
  3. THIOPENTAL SODIUM [Suspect]
     Indication: INDUCTION OF ANAESTHESIA
     Dates: start: 20000817, end: 20000817

REACTIONS (3)
  - ACIDOSIS [None]
  - ASTHMA [None]
  - VOLUME BLOOD DECREASED [None]
